FAERS Safety Report 9826625 (Version 1)
Quarter: 2014Q1

REPORT INFORMATION
  Report Type: Spontaneous
  Country: US (occurrence: US)
  Receive Date: 20140117
  Receipt Date: 20140117
  Transmission Date: 20141002
  Serious: No
  Sender: FDA-Public Use
  Company Number: US-BIOGENIDEC-2014BI001854

PATIENT
  Sex: Female

DRUGS (18)
  1. TECFIDERA [Suspect]
     Indication: MULTIPLE SCLEROSIS
     Route: 048
     Dates: start: 20130715
  2. ASPIRIN [Concomitant]
  3. CALCIUM [Concomitant]
  4. CINNAMON [Concomitant]
  5. VITAMIN D3 [Concomitant]
  6. LEVAQUIN [Concomitant]
  7. PV GLUCOSAMINE CHONDROITIN [Concomitant]
  8. CENTRUM SILVER [Concomitant]
  9. COLLAGEN ULTRA [Concomitant]
  10. AMBIEN PAK [Concomitant]
  11. PERCOCET [Concomitant]
  12. EXALGO [Concomitant]
  13. KLONOPIN [Concomitant]
  14. CYMBALTA [Concomitant]
  15. AMLODIPINE BESYLATE [Concomitant]
  16. METOPROLOL SUCCINATE ER [Concomitant]
  17. CRESTOR [Concomitant]
  18. PLAVIX [Concomitant]

REACTIONS (3)
  - Hyperhidrosis [Unknown]
  - Flushing [Unknown]
  - Diarrhoea [Unknown]
